FAERS Safety Report 4348755-9 (Version None)
Quarter: 2004Q1

REPORT INFORMATION
  Report Type: 
  Country: None (occurrence: None)
  Receive Date: 20040325
  Receipt Date: 20031203
  Transmission Date: 20041129
  Serious: No
  Sender: FDA-Public Use
  Company Number: USA031253875

PATIENT
  Age: 75 Year
  Sex: Female

DRUGS (3)
  1. FORTEO [Suspect]
     Indication: OSTEOPOROSIS
  2. DURAGESIC [Concomitant]
  3. ANTIBIOTICS [Concomitant]

REACTIONS (3)
  - CATARACT [None]
  - FEELING ABNORMAL [None]
  - PNEUMONIA [None]
